FAERS Safety Report 9249628 (Version 1)
Quarter: 2013Q2

REPORT INFORMATION
  Report Type: Spontaneous
  Country: US (occurrence: US)
  Receive Date: 20130423
  Receipt Date: 20130423
  Transmission Date: 20140414
  Serious: No
  Sender: FDA-Public Use
  Company Number: US-BRISTOL-MYERS SQUIBB COMPANY-17343427

PATIENT
  Age: 77 Year
  Sex: Male

DRUGS (1)
  1. YERVOY [Suspect]
     Dosage: 1ST DOSE OF IPILIMUMAB ON 15NOV2012 ?3RD DOSE; 3DEC2013
     Dates: start: 20121115

REACTIONS (1)
  - Muscular weakness [Unknown]
